FAERS Safety Report 12232240 (Version 2)
Quarter: 2016Q2

REPORT INFORMATION
  Report Type: Spontaneous
  Country: VN (occurrence: VN)
  Receive Date: 20160401
  Receipt Date: 20160420
  Transmission Date: 20160815
  Serious: Yes (Hospitalization, Other)
  Sender: FDA-Public Use
  Company Number: VN-NOVOPROD-485499

PATIENT
  Age: 74 Year
  Sex: Female

DRUGS (6)
  1. MIXTARD 30 FLEXPEN [Suspect]
     Active Substance: INSULIN HUMAN
     Dosage: 25 IU, QD (15 IN MORNING AND 10 IN AFTRENOON)
     Route: 065
  2. IMDUR [Concomitant]
     Active Substance: ISOSORBIDE MONONITRATE
     Dosage: UNK
     Route: 065
  3. MIXTARD 30 FLEXPEN [Suspect]
     Active Substance: INSULIN HUMAN
     Indication: TYPE 2 DIABETES MELLITUS
     Dosage: 40 IU, QD (25 IN MORNING AND 15 IN AFTRENOON)
     Route: 065
  4. VEROSPIRON [Concomitant]
     Active Substance: SPIRONOLACTONE
     Dosage: UNK
     Route: 065
  5. MIXTARD 30 FLEXPEN [Suspect]
     Active Substance: INSULIN HUMAN
     Dosage: 40 IU, QD (25 IN MORNING AND 15 IN AFTRENOON)
     Route: 065
  6. CO-DIOVAN [Concomitant]
     Active Substance: HYDROCHLOROTHIAZIDE\VALSARTAN
     Dosage: UNK
     Route: 065

REACTIONS (3)
  - Blood pressure decreased [Recovered/Resolved]
  - Hyperglycaemia [Unknown]
  - Blood glucose increased [Recovered/Resolved]

NARRATIVE: CASE EVENT DATE: 20160320
